FAERS Safety Report 7930545-9 (Version None)
Quarter: 2011Q4

REPORT INFORMATION
  Report Type: 
  Country: None (occurrence: None)
  Receive Date: 20111117
  Receipt Date: 20111117
  Transmission Date: 20120403
  Serious: Yes (Other)
  Sender: FDA-Public Use
  Company Number: None

PATIENT
  Sex: Female
  Weight: 90.7194 kg

DRUGS (2)
  1. CYTOXAN [Suspect]
     Indication: BREAST CANCER
     Dosage: 1176 X4 Q 21 D IV
     Route: 042
     Dates: start: 19960322, end: 19960523
  2. DOXORUBICIN 90MG/M2 [Suspect]
     Indication: BREAST CANCER
     Dosage: 176 X4 Q 21 D IV
     Route: 042
     Dates: start: 19960322, end: 19960523

REACTIONS (2)
  - MALIGNANT MELANOMA STAGE II [None]
  - BASAL CELL CARCINOMA [None]
